FAERS Safety Report 8368944-6 (Version None)
Quarter: 2012Q2

REPORT INFORMATION
  Report Type: 
  Country: None (occurrence: None)
  Receive Date: 20120516
  Receipt Date: 20120516
  Transmission Date: 20120825
  Serious: Yes (Hospitalization)
  Sender: FDA-Public Use
  Company Number: None

PATIENT
  Sex: Male
  Weight: 109.09 kg

DRUGS (2)
  1. CARBOPLATIN [Suspect]
     Dosage: 2 MG
     Dates: end: 20120417
  2. TAXOL [Suspect]
     Dosage: 50 MG
     Dates: end: 20120417

REACTIONS (1)
  - HAEMOPTYSIS [None]
